FAERS Safety Report 19243123 (Version 1)
Quarter: 2021Q2

REPORT INFORMATION
  Report Type: Spontaneous
  Country: AR (occurrence: AR)
  Receive Date: 20210511
  Receipt Date: 20210511
  Transmission Date: 20210717
  Serious: Yes (Other)
  Sender: FDA-Public Use
  Company Number: AR-PFIZER INC-2021400976

PATIENT
  Age: 71 Year
  Sex: Female

DRUGS (1)
  1. XELJANZ [Suspect]
     Active Substance: TOFACITINIB CITRATE
     Indication: RHEUMATOID ARTHRITIS
     Dosage: 5 MG, 2X/DAY
     Dates: start: 20180131

REACTIONS (6)
  - Osteoporosis [Unknown]
  - Impaired healing [Unknown]
  - Upper limb fracture [Unknown]
  - Bone disorder [Unknown]
  - Fall [Unknown]
  - Procedural complication [Unknown]

NARRATIVE: CASE EVENT DATE: 20200913
